FAERS Safety Report 7635872 (Version 5)
Quarter: 2013Q4

REPORT INFORMATION
  Report Type: Spontaneous
  Country: US (occurrence: US)
  Receive Date: 20101021
  Receipt Date: 20131223
  Transmission Date: 20140711
  Serious: Yes (Hospitalization, Other)
  Sender: FDA-Public Use
  Company Number: US-BAYER-201037396NA

PATIENT
  Age: 32 Year
  Sex: Female
  Weight: 83.9 kg

DRUGS (6)
  1. YASMIN [Suspect]
     Dosage: UNK
     Route: 048
     Dates: start: 2001, end: 2008
  2. OCELLA [Suspect]
     Dosage: UNK
     Route: 048
     Dates: start: 2001, end: 2008
  3. LEVAQUIN [Concomitant]
  4. NASONEX [Concomitant]
     Dosage: 50 MCG/24HR, UNK
     Dates: start: 20060613
  5. ZYRTEC [Concomitant]
     Dosage: 10 MG, UNK
     Route: 048
     Dates: start: 20060613
  6. METRONIDAZOLE [Concomitant]
     Dosage: 250 MG, UNK
     Route: 048
     Dates: start: 20060807

REACTIONS (14)
  - Cholecystitis chronic [None]
  - Gallbladder injury [Unknown]
  - Biliary dyskinesia [None]
  - Gallbladder cholesterolosis [None]
  - Gallbladder oedema [None]
  - Gastroenteritis [None]
  - Nausea [None]
  - Vomiting [None]
  - Diarrhoea [None]
  - Pain [Unknown]
  - Emotional distress [None]
  - Scar [None]
  - Mental disorder [None]
  - Injury [Not Recovered/Not Resolved]
